FAERS Safety Report 7987602-0 (Version None)
Quarter: 2011Q4

REPORT INFORMATION
  Report Type: 
  Country: None (occurrence: None)
  Receive Date: 20111216
  Receipt Date: 20110506
  Transmission Date: 20120403
  Serious: Yes (Other)
  Sender: FDA-Public Use
  Company Number: US-BRISTOL-MYERS SQUIBB COMPANY-15690597

PATIENT
  Age: 53 Year
  Sex: Female

DRUGS (7)
  1. ABILIFY [Suspect]
     Indication: SCHIZOAFFECTIVE DISORDER
     Dosage: SNCE JUL-2005 DOSE GRADUALLY INCREASED TO 45MG/D
  2. TRILAFON [Concomitant]
  3. LAMICTAL [Concomitant]
     Dosage: 1 DF: 100 UNITS NOT SPECIFIED; ONE TABLET DAILY
  4. RISPERDAL [Concomitant]
  5. ATIVAN [Concomitant]
     Dosage: 1 DOSAGE FORM: 1 MG UPTO 2 TABLETS
  6. LITHOBID [Concomitant]
     Dosage: 1 DF: 300 UNITS NOT SPECIFIED; ONE TABLET TWICE DAILY
  7. EFFEXOR XR [Concomitant]
     Dosage: 1 DF: 150 UNITS NOT SPECIFIED; ONE TABLET DAILY

REACTIONS (1)
  - TARDIVE DYSKINESIA [None]
